FAERS Safety Report 21622103 (Version 4)
Quarter: 2023Q1

REPORT INFORMATION
  Report Type: Other
  Country: GB (occurrence: GB)
  Receive Date: 20221121
  Receipt Date: 20230327
  Transmission Date: 20230418
  Serious: Yes (Death, Hospitalization)
  Sender: FDA-Public Use
  Company Number: GB-MAYNE PHARMA-2022MYN001440

PATIENT

DRUGS (40)
  1. TAMOXIFEN CITRATE [Suspect]
     Active Substance: TAMOXIFEN CITRATE
     Indication: Product used for unknown indication
     Dosage: 20 MG, QD
     Route: 048
     Dates: start: 20160712, end: 20160802
  2. ADALIMUMAB [Suspect]
     Active Substance: ADALIMUMAB
     Indication: Product used for unknown indication
     Dosage: 40 MG (EVERY 2 WEEKS)
     Route: 058
     Dates: start: 20151124
  3. CAPECITABINE [Suspect]
     Active Substance: CAPECITABINE
     Indication: Product used for unknown indication
     Dosage: 1000 MG
     Route: 048
     Dates: start: 20161122, end: 20161213
  4. CAPECITABINE [Suspect]
     Active Substance: CAPECITABINE
     Dosage: 1500 MG
     Route: 048
     Dates: start: 20161122, end: 20161213
  5. CAPECITABINE [Suspect]
     Active Substance: CAPECITABINE
     Dosage: 1300 MG
     Route: 048
     Dates: start: 20161213, end: 20161216
  6. EXEMESTANE [Suspect]
     Active Substance: EXEMESTANE
     Indication: Triple negative breast cancer
     Dosage: UNK UNK, QD
     Route: 048
     Dates: end: 20160712
  7. EXEMESTANE [Suspect]
     Active Substance: EXEMESTANE
     Indication: Breast cancer metastatic
     Dosage: 25 MG, QD
     Route: 065
     Dates: start: 20160531, end: 20160610
  8. EXEMESTANE [Suspect]
     Active Substance: EXEMESTANE
     Indication: HER2 positive breast cancer
  9. PACLITAXEL [Suspect]
     Active Substance: PACLITAXEL
     Indication: Breast cancer metastatic
     Dosage: 141 MG EVERY MONTH
     Route: 065
     Dates: start: 20151124, end: 20151221
  10. PACLITAXEL [Suspect]
     Active Substance: PACLITAXEL
     Indication: HER2 positive breast cancer
     Dosage: 141 MG
     Route: 042
     Dates: start: 20161122
  11. PACLITAXEL [Suspect]
     Active Substance: PACLITAXEL
     Indication: Triple negative breast cancer
     Dosage: UNK
     Route: 042
     Dates: start: 20161124
  12. TRASTUZUMAB [Suspect]
     Active Substance: TRASTUZUMAB
     Indication: Breast cancer metastatic
     Dosage: 600 MG (Q3WK)
     Route: 058
     Dates: start: 20160531, end: 20161115
  13. HYALURONIDASE (HUMAN RECOMBINANT) [Suspect]
     Active Substance: HYALURONIDASE (HUMAN RECOMBINANT)
     Indication: Breast cancer metastatic
     Dosage: 600 MG
     Route: 058
     Dates: start: 20160531, end: 20161115
  14. HYALURONIDASE (HUMAN RECOMBINANT) [Suspect]
     Active Substance: HYALURONIDASE (HUMAN RECOMBINANT)
     Dosage: 600 MG
     Route: 065
     Dates: start: 20151124, end: 20151221
  15. HYALURONIDASE (HUMAN RECOMBINANT) [Suspect]
     Active Substance: HYALURONIDASE (HUMAN RECOMBINANT)
     Dosage: 600 MG EVERY 3 WEEKS
     Route: 058
     Dates: start: 20151124, end: 20151221
  16. TAMOXIFEN CITRATE [Suspect]
     Active Substance: TAMOXIFEN CITRATE
     Indication: Breast cancer metastatic
     Dosage: 600 MG (Q3WK)
     Route: 065
  17. CALCIUM CARBONATE\CHOLECALCIFEROL [Concomitant]
     Active Substance: CALCIUM CARBONATE\CHOLECALCIFEROL
     Indication: Product used for unknown indication
     Dosage: 1.5 DF, QD
     Route: 065
     Dates: start: 20101221, end: 201511
  18. ENOXAPARIN [Concomitant]
     Active Substance: ENOXAPARIN
     Indication: Embolism venous
     Dosage: 20 MG, QD
     Route: 065
     Dates: start: 20160104, end: 20160106
  19. OMEPRAZOLE [Concomitant]
     Active Substance: OMEPRAZOLE
     Indication: Product used for unknown indication
     Dosage: 20 MG, QD
     Route: 065
     Dates: start: 20170530
  20. CARBOPLATIN [Suspect]
     Active Substance: CARBOPLATIN
     Indication: Triple negative breast cancer
     Route: 065
  21. CYCLOPHOSPHAMIDE [Suspect]
     Active Substance: CYCLOPHOSPHAMIDE
     Indication: Triple negative breast cancer
  22. DOXORUBICIN [Suspect]
     Active Substance: DOXORUBICIN
     Indication: Triple negative breast cancer
     Route: 065
  23. EPIRUBICIN [Suspect]
     Active Substance: EPIRUBICIN
     Indication: Triple negative breast cancer
     Route: 065
  24. ERIBULIN MESYLATE [Suspect]
     Active Substance: ERIBULIN MESYLATE
     Indication: Triple negative breast cancer
     Route: 065
  25. FLUOROURACIL [Suspect]
     Active Substance: FLUOROURACIL
     Indication: Triple negative breast cancer
     Dosage: 25 MG, QD
     Route: 065
     Dates: start: 20160531
  26. GEMCITABINE [Suspect]
     Active Substance: GEMCITABINE
     Indication: Triple negative breast cancer
     Route: 065
  27. HYALURONIDASE [Suspect]
     Active Substance: HYALURONIDASE
     Indication: Triple negative breast cancer
     Dosage: 600 MG, EVERY 3 WEEKS
     Dates: start: 20160531
  28. PEGVORHYALURONIDASE ALFA [Suspect]
     Active Substance: PEGVORHYALURONIDASE ALFA
     Indication: Triple negative breast cancer
     Dosage: UNK
     Route: 065
     Dates: start: 20160531
  29. LEVOMEPROMAZINE [Concomitant]
     Active Substance: LEVOMEPROMAZINE
     Indication: Product used for unknown indication
     Dosage: 6 MG
     Route: 065
     Dates: start: 20160106
  30. LEVOMEPROMAZINE [Concomitant]
     Active Substance: LEVOMEPROMAZINE
     Dosage: 12.5 MG
     Route: 065
     Dates: start: 20151229, end: 20160105
  31. METOCLOPRAMIDE [Concomitant]
     Active Substance: METOCLOPRAMIDE
     Indication: Product used for unknown indication
     Dosage: 40 MG
     Route: 065
     Dates: start: 20160104, end: 20160105
  32. ALFENTANIL [Concomitant]
     Active Substance: ALFENTANIL
  33. BUTYLSCOPOLAMINE BROMIDE [Concomitant]
     Active Substance: BUTYLSCOPOLAMINE BROMIDE
     Indication: Product used for unknown indication
     Dosage: 20 MG
     Route: 065
     Dates: start: 20160104, end: 20160104
  34. MIDAZOLAM [Concomitant]
     Active Substance: MIDAZOLAM
     Indication: Product used for unknown indication
     Dosage: UNK
     Route: 065
  35. BISACODYL [Concomitant]
     Active Substance: BISACODYL
     Indication: Product used for unknown indication
     Dosage: 10 MG, EVERY ONE DAY
     Route: 065
     Dates: start: 20160127
  36. LORAZEPAM [Concomitant]
     Active Substance: LORAZEPAM
     Indication: Product used for unknown indication
     Dosage: 0.5 MG, EVERY 1 DAY
     Route: 065
     Dates: start: 20160122
  37. FENTANYL [Concomitant]
     Active Substance: FENTANYL
     Indication: Product used for unknown indication
     Dosage: 25 MCG
     Route: 065
     Dates: start: 201603
  38. POLYETHYLENE GLYCOL 3350\POTASSIUM CHLORIDE\SODIUM BICARBONATE\SODIUM [Concomitant]
     Active Substance: POLYETHYLENE GLYCOL 3350\POTASSIUM CHLORIDE\SODIUM BICARBONATE\SODIUM CHLORIDE
     Indication: Product used for unknown indication
     Dosage: UNK, AS NECESSARY
     Route: 065
     Dates: start: 201603
  39. ACETAMINOPHEN [Concomitant]
     Active Substance: ACETAMINOPHEN
     Indication: Product used for unknown indication
     Dosage: 500 MG, AS NECESSARY
     Route: 065
     Dates: start: 20160104, end: 20160104
  40. LOPERAMIDE [Concomitant]
     Active Substance: LOPERAMIDE
     Indication: Product used for unknown indication
     Dosage: 2 MG. AS NECESSARY
     Route: 065
     Dates: start: 20160621, end: 20160712

REACTIONS (31)
  - Ascites [Fatal]
  - Dyspnoea [Fatal]
  - Agitation [Fatal]
  - Asthenia [Fatal]
  - Irritability [Fatal]
  - Tremor [Fatal]
  - Cerebral haemorrhage [Fatal]
  - Fatigue [Fatal]
  - Back pain [Fatal]
  - Malaise [Fatal]
  - Musculoskeletal stiffness [Fatal]
  - Headache [Fatal]
  - Product administered at inappropriate site [Fatal]
  - Colitis ulcerative [Fatal]
  - Sinusitis [Fatal]
  - Neck pain [Fatal]
  - Sensory loss [Fatal]
  - Crying [Fatal]
  - Vomiting [Fatal]
  - Sensory disturbance [Fatal]
  - Balance disorder [Fatal]
  - Rectal haemorrhage [Fatal]
  - Injection site pain [Fatal]
  - Ill-defined disorder [Fatal]
  - Muscle twitching [Fatal]
  - Hypertension [Fatal]
  - Insomnia [Fatal]
  - Abdominal pain upper [Fatal]
  - Depressed mood [Fatal]
  - Crohn^s disease [Fatal]
  - Drug resistance [Fatal]

NARRATIVE: CASE EVENT DATE: 20160712
